FAERS Safety Report 21675267 (Version 2)
Quarter: 2023Q1

REPORT INFORMATION
  Report Type: Spontaneous
  Country: JP (occurrence: JP)
  Receive Date: 20221202
  Receipt Date: 20230119
  Transmission Date: 20230418
  Serious: Yes (Hospitalization, Other)
  Sender: FDA-Public Use
  Company Number: JP-DSJP-DSJ-2022-143402

PATIENT
  Age: 53 Year
  Sex: Female
  Weight: 57.7 kg

DRUGS (6)
  1. ENHERTU [Suspect]
     Active Substance: FAM-TRASTUZUMAB DERUXTECAN-NXKI
     Indication: Invasive ductal breast carcinoma
     Dosage: 5.4 MG/KG, ONCE EVERY 3 WK
     Route: 041
     Dates: start: 20220614, end: 20220614
  2. DENOSUMAB [Concomitant]
     Active Substance: DENOSUMAB
     Indication: Metastases to bone
     Dosage: 120 MG
     Route: 058
     Dates: start: 20180530
  3. GRANISETRON HYDROCHLORIDE [Concomitant]
     Active Substance: GRANISETRON HYDROCHLORIDE
     Dosage: 1 DF, QD
     Route: 041
     Dates: start: 20220614
  4. FOSAPREPITANT [FOSAPREPITANT MEGLUMINE] [Concomitant]
     Dosage: 150 MG, QD
     Route: 041
     Dates: start: 20220614
  5. DEXAMETHASONE SODIUM PHOSPHATE [Concomitant]
     Active Substance: DEXAMETHASONE SODIUM PHOSPHATE
     Dosage: 6.6 MG, QD
     Route: 041
     Dates: start: 20220614
  6. DEXTROSE [Concomitant]
     Active Substance: DEXTROSE
     Dosage: UNK
     Route: 065
     Dates: start: 20220614

REACTIONS (3)
  - Laryngeal oedema [Recovered/Resolved]
  - Anaphylactic reaction [Recovered/Resolved]
  - Hypoxia [Recovered/Resolved]

NARRATIVE: CASE EVENT DATE: 20220614
